FAERS Safety Report 6994574-4 (Version None)
Quarter: 2010Q3

REPORT INFORMATION
  Report Type: 
  Country: None (occurrence: None)
  Receive Date: 20100916
  Receipt Date: 20100916
  Transmission Date: 20110219
  Serious: Yes (Hospitalization)
  Sender: FDA-Public Use
  Company Number: None

PATIENT
  Sex: Male
  Weight: 79.7 kg

DRUGS (1)
  1. VANCOMYCIN [Suspect]

REACTIONS (8)
  - ABSCESS FUNGAL [None]
  - BACTERAEMIA [None]
  - CONVULSION [None]
  - DEHYDRATION [None]
  - LIVER ABSCESS [None]
  - NAUSEA [None]
  - RENAL FAILURE ACUTE [None]
  - VOMITING [None]
